FAERS Safety Report 7280912-4 (Version None)
Quarter: 2011Q1

REPORT INFORMATION
  Report Type: 
  Country: None (occurrence: None)
  Receive Date: 20110208
  Receipt Date: 20110203
  Transmission Date: 20110831
  Serious: Yes (Other)
  Sender: FDA-Public Use
  Company Number: US-ALEXION-A201001667

PATIENT

DRUGS (6)
  1. SOLIRIS [Suspect]
     Dosage: 1200 MG, Q2W
     Route: 042
     Dates: start: 20101201, end: 20101201
  2. COMPAZINE [Concomitant]
     Dosage: UNK
  3. ZOFRAN [Concomitant]
     Dosage: UNK
  4. REGLAN [Concomitant]
     Dosage: UNK
  5. SOLIRIS [Suspect]
     Indication: HAEMOLYTIC URAEMIC SYNDROME
     Dosage: 900 MG, QW
     Route: 042
     Dates: start: 20101109, end: 20101201
  6. SOLIRIS [Suspect]
     Dosage: 900 MG, QW
     Route: 042
     Dates: start: 20101201

REACTIONS (3)
  - CEREBROVASCULAR ACCIDENT [None]
  - NAUSEA [None]
  - SINUSITIS [None]
